FAERS Safety Report 7958456-3 (Version None)
Quarter: 2011Q4

REPORT INFORMATION
  Report Type: 
  Country: None (occurrence: None)
  Receive Date: 20111205
  Receipt Date: 20111123
  Transmission Date: 20120403
  Serious: Yes (Hospitalization)
  Sender: FDA-Public Use
  Company Number: ES-ELI_LILLY_AND_COMPANY-ES201111007393

PATIENT
  Sex: Female
  Weight: 65 kg

DRUGS (5)
  1. IRBESARTAN [Concomitant]
     Indication: HYPERTENSION
     Dosage: 150 MG, QD
     Route: 048
  2. TRAMADOL HCL [Concomitant]
     Indication: PAIN
     Dosage: 1950 MG, QD
     Route: 048
  3. OMEPRAZOLE [Concomitant]
     Indication: GASTRIC DISORDER
     Dosage: 20 MG, QD
     Route: 048
  4. FORTEO [Suspect]
     Indication: OSTEOPOROSIS
     Dosage: 20 UG, QD
     Route: 058
     Dates: start: 20091110, end: 20111118
  5. GABAPENTINA [Concomitant]
     Indication: PAIN
     Dosage: 1800 MG, QD
     Route: 048

REACTIONS (2)
  - ARTHRALGIA [None]
  - HIP FRACTURE [None]
